FAERS Safety Report 10340461 (Version 2)
Quarter: 2014Q3

REPORT INFORMATION
  Report Type: Spontaneous
  Country: US (occurrence: None)
  Receive Date: 20140722
  Receipt Date: 20140730
  Transmission Date: 20150326
  Serious: Yes (Hospitalization, Other)
  Sender: FDA-Public Use
  Company Number: AXC-2014-000449

PATIENT
  Age: 60 Year
  Sex: Male

DRUGS (1)
  1. ZENPEP [Suspect]
     Active Substance: PANCRELIPASE\PANCRELIPASE AMYLASE\PANCRELIPASE LIPASE\PANCRELIPASE PROTEASE
     Indication: PANCREATIC DISORDER
     Dosage: 40000 USP, WITH MEALS AND WITH EACH SNACK
     Route: 048

REACTIONS (4)
  - Pain [None]
  - Gastric ulcer [None]
  - Bacterial infection [None]
  - Myocardial infarction [None]

NARRATIVE: CASE EVENT DATE: 2014
